FAERS Safety Report 10375341 (Version 2)
Quarter: 2014Q3

REPORT INFORMATION
  Report Type: Spontaneous
  Country: IT (occurrence: None)
  Receive Date: 20140806
  Receipt Date: 20140825
  Transmission Date: 20150326
  Serious: Yes (Hospitalization)
  Sender: FDA-Public Use
  Company Number: 2014STPI000360

PATIENT
  Age: 62 Year
  Sex: Male

DRUGS (8)
  1. CALCITROL [Concomitant]
     Active Substance: CALCITRIOL
  2. LANSOPRAZOLE. [Concomitant]
     Active Substance: LANSOPRAZOLE
  3. CARNITOR [Suspect]
     Active Substance: LEVOCARNITINE
     Indication: CARNITINE DEFICIENCY
     Route: 042
     Dates: start: 20140303, end: 20140521
  4. ACETYLSALICYLIC ACID [Concomitant]
     Active Substance: ASPIRIN
  5. FERROUS OXIDE. [Concomitant]
     Active Substance: FERROUS OXIDE
  6. SHAKUYAKANZOTO (HERBAL EXTRACT NOS) [Concomitant]
  7. EPOETIN BETA [Concomitant]
     Active Substance: ERYTHROPOIETIN
  8. PRECIPITATED CALCIUM CARBONATE [Concomitant]
     Active Substance: CALCIUM CARBONATE

REACTIONS (4)
  - Shunt malfunction [None]
  - Upper respiratory tract inflammation [None]
  - Cholecystitis [None]
  - Sepsis [None]

NARRATIVE: CASE EVENT DATE: 20140329
